FAERS Safety Report 8547422 (Version 3)
Quarter: 2013Q2

REPORT INFORMATION
  Report Type: Spontaneous
  Country: US (occurrence: US)
  Receive Date: 20120504
  Receipt Date: 20130425
  Transmission Date: 20140414
  Serious: Yes (Other)
  Sender: FDA-Public Use
  Company Number: US-BRISTOL-MYERS SQUIBB COMPANY-16545212

PATIENT
  Age: 19 Year
  Sex: Male

DRUGS (3)
  1. SPRYCEL [Suspect]
     Indication: CHRONIC MYELOID LEUKAEMIA
     Dosage: GEL, STOPPED: 23-APR-2012, RESTARTED ON 30-APR-2012
     Route: 048
  2. HYDREA [Suspect]
  3. ALLOPURINOL [Concomitant]

REACTIONS (1)
  - Thrombocytopenia [Recovered/Resolved]
